FAERS Safety Report 9015049 (Version 2)
Quarter: 2013Q1

REPORT INFORMATION
  Report Type: Spontaneous
  Country: DE (occurrence: DE)
  Receive Date: 20130116
  Receipt Date: 20130308
  Transmission Date: 20140127
  Serious: Yes (Hospitalization, Other)
  Sender: FDA-Public Use
  Company Number: DE-AMGEN-DEUSP2013002681

PATIENT
  Age: 73 Year
  Sex: Male

DRUGS (3)
  1. ENBREL [Suspect]
     Indication: RHEUMATOID ARTHRITIS
     Dosage: 50 MG, WEEKLY
     Route: 058
     Dates: start: 20110107, end: 20120808
  2. FALITHROM [Concomitant]
     Dosage: UNK
  3. PREDNISOLON                        /00016201/ [Concomitant]
     Dosage: 2 MG, UNK

REACTIONS (10)
  - Joint stiffness [Recovered/Resolved]
  - Limb injury [Recovered/Resolved]
  - Impaired healing [Recovered/Resolved]
  - Necrosis [Recovered/Resolved]
  - Blood creatinine increased [Recovered/Resolved]
  - Platelet count decreased [Recovered/Resolved]
  - Haematoma [Recovered/Resolved]
  - Blood uric acid increased [Recovered/Resolved]
  - Wound infection staphylococcal [Recovered/Resolved]
  - Enterobacter infection [Recovered/Resolved]
